FAERS Safety Report 15620204 (Version 1)
Quarter: 2018Q4

REPORT INFORMATION
  Report Type: Spontaneous
  Country: US (occurrence: US)
  Receive Date: 20181115
  Receipt Date: 20181115
  Transmission Date: 20190205
  Serious: No
  Sender: FDA-Public Use
  Company Number: US-ASTRAZENECA-2018SF50239

PATIENT
  Sex: Female
  Weight: 68 kg

DRUGS (1)
  1. RHINOCORT [Suspect]
     Active Substance: BUDESONIDE
     Indication: MULTIPLE ALLERGIES
     Dosage: 2 SPRAYS PER NOSTRIL TWICE
     Route: 045

REACTIONS (2)
  - Nasal pruritus [Recovered/Resolved]
  - Restlessness [Recovered/Resolved]
